FAERS Safety Report 18739344 (Version 2)
Quarter: 2021Q1

REPORT INFORMATION
  Report Type: Report from Study
  Country: NL (occurrence: NL)
  Receive Date: 20210114
  Receipt Date: 20210120
  Transmission Date: 20210419
  Serious: No
  Sender: FDA-Public Use
  Company Number: NL-SA-2021SA008980

PATIENT
  Age: 47 Year
  Sex: Female

DRUGS (8)
  1. IODINE. [Concomitant]
     Active Substance: IODINE
  2. TRIAMCINOLONACETONIDE [Concomitant]
     Active Substance: TRIAMCINOLONE ACETONIDE
     Dosage: 55 UG /DO FL 120DO, 1D2SPR.
  3. AZELASTINE. [Concomitant]
     Active Substance: AZELASTINE HYDROCHLORIDE
     Dosage: 137/50UG/DO 120 DO, 2D1SPR
  4. LEVOTHYROXINE. [Concomitant]
     Active Substance: LEVOTHYROXINE
     Dosage: 25UG, 1D1,5T .
  5. THYROTROPIN ALFA [Suspect]
     Active Substance: THYROTROPIN ALFA
     Indication: DIAGNOSTIC PROCEDURE
     Dosage: 0,9MG/ML
     Route: 030
     Dates: start: 20210107, end: 20210108
  6. LEVONORGESTREL. [Concomitant]
     Active Substance: LEVONORGESTREL
     Dosage: 30/150UG, 1D1T
  7. LEVOTHYROXINE. [Concomitant]
     Active Substance: LEVOTHYROXINE
     Dosage: 100UG, 1D1T
  8. OMEZOLAN [OMEPRAZOLE] [Concomitant]
     Dosage: 20 MG, 1D1C

REACTIONS (2)
  - Influenza like illness [Not Recovered/Not Resolved]
  - Fatigue [Not Recovered/Not Resolved]

NARRATIVE: CASE EVENT DATE: 20210107
